FAERS Safety Report 10223912 (Version 1)
Quarter: 2014Q2

REPORT INFORMATION
  Report Type: Spontaneous
  Country: US (occurrence: None)
  Receive Date: 20140605
  Receipt Date: 20140605
  Transmission Date: 20141212
  Serious: Yes (Death)
  Sender: FDA-Public Use
  Company Number: ADR-2014-00951

PATIENT
  Age: 50 Year
  Sex: Male

DRUGS (5)
  1. COMPOUNDED BACLOFEN INTRATHECAL [Suspect]
  2. DILAUDID [Suspect]
  3. BUPIVACAINE [Suspect]
  4. CLONIDINE [Suspect]
  5. KETAMINE [Suspect]

REACTIONS (2)
  - Rectal cancer metastatic [None]
  - Malignant neoplasm progression [None]
